FAERS Safety Report 13631300 (Version 1)
Quarter: 2017Q2

REPORT INFORMATION
  Report Type: Spontaneous
  Country: US (occurrence: US)
  Receive Date: 20170531
  Receipt Date: 20170531
  Transmission Date: 20170830
  Serious: No
  Sender: FDA-Public Use
  Company Number: US-ASTELLAS-1369866

PATIENT
  Sex: Female

DRUGS (1)
  1. TARCEVA [Suspect]
     Active Substance: ERLOTINIB HYDROCHLORIDE
     Indication: LUNG NEOPLASM MALIGNANT
     Route: 065
     Dates: start: 201311

REACTIONS (10)
  - Skin disorder [Recovered/Resolved]
  - Foreign body sensation in eyes [Unknown]
  - Hair texture abnormal [Unknown]
  - Hair growth abnormal [Unknown]
  - Eyelash thickening [Unknown]
  - Hair disorder [Unknown]
  - Hair colour changes [Unknown]
  - Rash [Recovered/Resolved]
  - Eyelash hyperpigmentation [Unknown]
  - Growth of eyelashes [Unknown]
